FAERS Safety Report 8576499 (Version 2)
Quarter: 2013Q4

REPORT INFORMATION
  Report Type: Spontaneous
  Country: US (occurrence: US)
  Receive Date: 20120523
  Receipt Date: 20131114
  Transmission Date: 20140711
  Serious: Yes (Other)
  Sender: FDA-Public Use
  Company Number: US-ALLERGAN-1206816US

PATIENT
  Age: 61 Year
  Sex: Female

DRUGS (1)
  1. LATISSE 0.03% [Suspect]
     Indication: GROWTH OF EYELASHES
     Dosage: 2 GTT, QHS
     Route: 061
     Dates: start: 2009

REACTIONS (4)
  - Macular fibrosis [Unknown]
  - Macular fibrosis [Unknown]
  - Visual acuity reduced [Unknown]
  - Wrong technique in drug usage process [Unknown]
